FAERS Safety Report 11364553 (Version 2)
Quarter: 2015Q3

REPORT INFORMATION
  Report Type: Spontaneous
  Country: FR (occurrence: FR)
  Receive Date: 20150811
  Receipt Date: 20150924
  Transmission Date: 20151125
  Serious: Yes (Hospitalization)
  Sender: FDA-Public Use
  Company Number: FR-TEVA-584909ISR

PATIENT
  Sex: Female

DRUGS (3)
  1. CONTRAMAL [Concomitant]
     Active Substance: TRAMADOL HYDROCHLORIDE
     Indication: PAIN
     Dosage: ONGOING
  2. CONTRAMAL [Concomitant]
     Active Substance: TRAMADOL HYDROCHLORIDE
     Indication: INSOMNIA
  3. COPAXONE [Suspect]
     Active Substance: GLATIRAMER ACETATE
     Dosage: STARTED 15 YEARS AGO. INJECTION WITH THE C-SYNC AT A DEPTH BETWEEN 6 AND 8 MM
     Route: 058
     Dates: start: 2000

REACTIONS (5)
  - Incision site pain [Unknown]
  - Fall [Unknown]
  - Femoral neck fracture [Recovered/Resolved with Sequelae]
  - Pain in extremity [Not Recovered/Not Resolved]
  - Muscle spasticity [Not Recovered/Not Resolved]

NARRATIVE: CASE EVENT DATE: 2015
